FAERS Safety Report 8188598-1 (Version None)
Quarter: 2012Q1

REPORT INFORMATION
  Report Type: 
  Country: None (occurrence: None)
  Receive Date: 20120306
  Receipt Date: 20120224
  Transmission Date: 20120608
  Serious: Yes (Other)
  Sender: FDA-Public Use
  Company Number: DE-FRI-1000028437

PATIENT
  Age: 30 Year
  Sex: Female
  Weight: 68 kg

DRUGS (2)
  1. ESCITALOPRAM [Suspect]
     Indication: DEPRESSION
     Dosage: 40 MG
  2. ESCITALOPRAM [Suspect]
     Dosage: UNKNOWN DOSAGE

REACTIONS (5)
  - MECONIUM IN AMNIOTIC FLUID [None]
  - BREAST FEEDING [None]
  - GESTATIONAL DIABETES [None]
  - PREGNANCY [None]
  - OVERDOSE [None]
